FAERS Safety Report 9909046 (Version 1)
Quarter: 2014Q1

REPORT INFORMATION
  Report Type: Spontaneous
  Country: US (occurrence: None)
  Receive Date: 20140212
  Receipt Date: 20140212
  Transmission Date: 20141002
  Serious: Yes (Hospitalization)
  Sender: FDA-Public Use
  Company Number: 2014020085

PATIENT
  Age: 74 Year
  Sex: Male

DRUGS (11)
  1. 5-AMINOSALICYLIC ACID [Suspect]
     Indication: CROHN^S DISEASE
  2. ROSUVASTTIN [Concomitant]
  3. ASPIRIN (ACETYLSALICYLIC ACID) [Concomitant]
  4. BUDESONIDE [Concomitant]
  5. DOCUSATE [Concomitant]
  6. OMEPRAZOLE [Concomitant]
  7. NIACIN [Concomitant]
  8. METOPROLOL [Concomitant]
  9. LISINOPRIL [Concomitant]
  10. ISOSORBIDE MONONITRATE [Concomitant]
  11. GABAPENTIN [Concomitant]

REACTIONS (13)
  - Confusional state [None]
  - Fall [None]
  - Febrile neutropenia [None]
  - Pulmonary oedema [None]
  - Blood pressure diastolic decreased [None]
  - Agranulocytosis [None]
  - Toxicity to various agents [None]
  - Sepsis [None]
  - Klebsiella test positive [None]
  - Abdominal tenderness [None]
  - Myeloid maturation arrest [None]
  - Abdominal distension [None]
  - Large intestinal stenosis [None]
